FAERS Safety Report 5191279-X (Version None)
Quarter: 2006Q4

REPORT INFORMATION
  Report Type: 
  Country: None (occurrence: None)
  Receive Date: 20061219
  Receipt Date: 20061219
  Transmission Date: 20070319
  Serious: Yes (Hospitalization)
  Sender: FDA-Public Use
  Company Number: None

PATIENT
  Age: 74 Year
  Sex: Male
  Weight: 70.7611 kg

DRUGS (13)
  1. GLYBURIDE [Suspect]
     Dosage: 10 MG BID PO
     Route: 048
     Dates: start: 20060531, end: 20061207
  2. HYDROCHLOROTHIAZIDE [Concomitant]
  3. IBUPROFEN [Concomitant]
  4. CIPRO [Concomitant]
  5. HYDROCODONE BITARTRATE [Concomitant]
  6. TELITHROMYCIN [Concomitant]
  7. ALLOPURINOL SODIUM [Concomitant]
  8. ASPIRIN [Concomitant]
  9. ATENOLOL [Concomitant]
  10. GLYBURIDE [Concomitant]
  11. ISOSORBIDE [Concomitant]
  12. LEVOTHYROXINE SODIUM [Concomitant]
  13. MEGESTROL ACETATE [Concomitant]

REACTIONS (14)
  - ABNORMAL BEHAVIOUR [None]
  - ASTHENIA [None]
  - CONFUSIONAL STATE [None]
  - DRUG TOXICITY [None]
  - DYSARTHRIA [None]
  - DYSPHAGIA [None]
  - FACIAL PALSY [None]
  - HYPOGLYCAEMIA [None]
  - INFECTION [None]
  - INFLAMMATION [None]
  - MENTAL STATUS CHANGES [None]
  - NEOPLASM [None]
  - SPEECH DISORDER [None]
  - TONGUE PARALYSIS [None]
